FAERS Safety Report 10594650 (Version 2)
Quarter: 2014Q4

REPORT INFORMATION
  Report Type: Spontaneous
  Country: US (occurrence: US)
  Receive Date: 20141120
  Receipt Date: 20141120
  Transmission Date: 20150529
  Serious: No
  Sender: FDA-Public Use
  Company Number: US-TEVA-482140USA

PATIENT
  Sex: Female

DRUGS (2)
  1. LISINOPRIL. [Concomitant]
     Active Substance: LISINOPRIL
  2. DIAZEPAM. [Suspect]
     Active Substance: DIAZEPAM
     Indication: ANXIETY
     Dates: start: 201312

REACTIONS (6)
  - Headache [Not Recovered/Not Resolved]
  - Product size issue [Unknown]
  - Drug ineffective [Unknown]
  - Anxiety [Unknown]
  - Drug effect decreased [Not Recovered/Not Resolved]
  - Dysgeusia [Not Recovered/Not Resolved]
